FAERS Safety Report 20299825 (Version 1)
Quarter: 2022Q1

REPORT INFORMATION
  Report Type: Spontaneous
  Country: PR (occurrence: PR)
  Receive Date: 20220105
  Receipt Date: 20220105
  Transmission Date: 20220423
  Serious: No
  Sender: FDA-Public Use
  Company Number: PR-JNJFOC-20211257685

PATIENT
  Age: 71 Year
  Sex: Male
  Weight: 68.100 kg

DRUGS (1)
  1. ERLEADA [Suspect]
     Active Substance: APALUTAMIDE
     Indication: Prostate cancer
     Route: 048
     Dates: start: 20211211

REACTIONS (3)
  - Headache [Unknown]
  - Amnesia [Unknown]
  - Nervousness [Unknown]

NARRATIVE: CASE EVENT DATE: 20211212
